FAERS Safety Report 6206320-2 (Version None)
Quarter: 2009Q2

REPORT INFORMATION
  Report Type: 
  Country: None (occurrence: None)
  Receive Date: 20090528
  Receipt Date: 20090520
  Transmission Date: 20091009
  Serious: Yes (Other)
  Sender: FDA-Public Use
  Company Number: US-BAYER-200918421NA

PATIENT
  Age: 54 Year
  Sex: Male

DRUGS (5)
  1. NEXAVAR [Suspect]
     Indication: HEPATIC NEOPLASM MALIGNANT
     Dosage: TOTAL DAILY DOSE: 800 MG  UNIT DOSE: 200 MG
     Route: 048
  2. ATIVAN [Concomitant]
  3. MIRALAX [Concomitant]
  4. LORTAB [Concomitant]
     Dosage: 10/325 Q 3-4 HOURS PRN
  5. DURAGESIC-100 [Concomitant]
     Dosage: EVERY 3 DAYS

REACTIONS (2)
  - CATATONIA [None]
  - DYSTONIA [None]
